FAERS Safety Report 24319429 (Version 1)
Quarter: 2024Q3

REPORT INFORMATION
  Report Type: Report from Study
  Country: US (occurrence: US)
  Receive Date: 20240914
  Receipt Date: 20240914
  Transmission Date: 20241016
  Serious: No
  Sender: ROCHE
  Company Number: US-ROCHE-10000075223

PATIENT
  Age: 42 Year
  Sex: Female

DRUGS (2)
  1. OCREVUS [Suspect]
     Active Substance: OCRELIZUMAB
     Indication: Relapsing multiple sclerosis
     Route: 042
     Dates: start: 2022
  2. VALACYCLOVIR [Concomitant]
     Active Substance: VALACYCLOVIR HYDROCHLORIDE

REACTIONS (4)
  - Maternal exposure before pregnancy [Unknown]
  - Oral herpes [Not Recovered/Not Resolved]
  - Immunodeficiency [Unknown]
  - No adverse event [Unknown]

NARRATIVE: CASE EVENT DATE: 20220101
